FAERS Safety Report 23134305 (Version 1)
Quarter: 2023Q4

REPORT INFORMATION
  Report Type: Spontaneous
  Country: US (occurrence: None)
  Receive Date: 20231101
  Receipt Date: 20231101
  Transmission Date: 20240110
  Serious: Yes (Hospitalization)
  Sender: FDA-Public Use
  Company Number: None

PATIENT
  Age: 15 Year
  Sex: Female
  Weight: 96.3 kg

DRUGS (20)
  1. CYCLOPHOSPHAMIDE [Suspect]
     Active Substance: CYCLOPHOSPHAMIDE
     Dates: end: 20231019
  2. DACTINOMYCIN [Concomitant]
     Dates: end: 20231019
  3. VINCRISTINE SULFATE [Suspect]
     Dates: end: 20231013
  4. VINORELBINE TARTRATE [Suspect]
     Dates: end: 20231027
  5. CALCIUM CARBONATE [Concomitant]
  6. CHLORHEXIDINE [Concomitant]
     Active Substance: CHLORHEXIDINE\CHLORHEXIDINE GLUCONATE
  7. CLONIDINE [Concomitant]
     Active Substance: CLONIDINE
  8. DOCUSATE SODIUM [Concomitant]
     Active Substance: DOCUSATE SODIUM
  9. HEPARIN [Concomitant]
     Active Substance: HEPARIN SODIUM
  10. HYDROXYZINE HCL [Concomitant]
  11. LACTULOSE [Concomitant]
  12. METHADONE [Concomitant]
  13. OLANZAPINE [Concomitant]
  14. POLYETHYLENE GLYCOL [Concomitant]
  15. PREDNISONE [Concomitant]
  16. PREGABALIN [Concomitant]
     Active Substance: PREGABALIN
  17. SCOPOLAMINE [Concomitant]
     Active Substance: SCOPOLAMINE
  18. SENNOSIDES [Concomitant]
  19. SERTRALINE [Concomitant]
  20. SIMETHICONE [Concomitant]

REACTIONS (7)
  - Abdominal pain [None]
  - Pyrexia [None]
  - Myalgia [None]
  - Cancer fatigue [None]
  - Headache [None]
  - Neutrophil count decreased [None]
  - Hypotension [None]

NARRATIVE: CASE EVENT DATE: 20231028
